FAERS Safety Report 13728553 (Version 2)
Quarter: 2017Q4

REPORT INFORMATION
  Report Type: Spontaneous
  Country: DE (occurrence: DE)
  Receive Date: 20170707
  Receipt Date: 20171205
  Transmission Date: 20180320
  Serious: Yes (Hospitalization)
  Sender: FDA-Public Use
  Company Number: DE-ASTRAZENECA-2017SE69674

PATIENT
  Age: 76 Year
  Sex: Male
  Weight: 97.4 kg

DRUGS (22)
  1. AMLODIPIN [Concomitant]
     Active Substance: AMLODIPINE BESYLATE
     Dosage: 10.0MG UNKNOWN
  2. PANTOZOL [Concomitant]
     Active Substance: PANTOPRAZOLE SODIUM
     Dosage: 40.0MG UNKNOWN
  3. HCT [Concomitant]
     Active Substance: HYDROCHLOROTHIAZIDE
  4. VALSARTAN. [Concomitant]
     Active Substance: VALSARTAN
     Indication: PROTEINURIA
     Dates: end: 20170512
  5. ALLOPURINOL. [Concomitant]
     Active Substance: ALLOPURINOL
  6. NOVAMINSULFON [Concomitant]
     Active Substance: METAMIZOLE
  7. TOREM [Concomitant]
     Active Substance: TORSEMIDE
     Dosage: 10.0MG UNKNOWN
  8. FLUVASTATIN [Concomitant]
     Active Substance: FLUVASTATIN SODIUM
     Dosage: 40.0MG UNKNOWN
  9. CALCIVIT D [Concomitant]
  10. JANUVIA [Concomitant]
     Active Substance: SITAGLIPTIN PHOSPHATE
     Dosage: 50.0MG UNKNOWN
  11. BICALUTAMIDE. [Suspect]
     Active Substance: BICALUTAMIDE
     Indication: PROSTATE CANCER
     Route: 048
     Dates: start: 20170430, end: 20170508
  12. INSULIN ISOPHANE BOVINE [Concomitant]
     Active Substance: INSULIN BEEF
     Dosage: 34.0IU UNKNOWN
  13. FOLSAN [Concomitant]
     Active Substance: FOLIC ACID
     Dosage: 5.0MG UNKNOWN
  14. BELOC-ZOC MITE [Concomitant]
     Active Substance: METOPROLOL SUCCINATE
  15. HYDROMORPHONE [Concomitant]
     Active Substance: HYDROMORPHONE
  16. METFORMIN [Concomitant]
     Active Substance: METFORMIN HYDROCHLORIDE
  17. INSULIN LISPRO [Concomitant]
     Active Substance: INSULIN LISPRO
  18. FALITHROM [Concomitant]
     Active Substance: PHENPROCOUMON
  19. FERRO SANOL [Concomitant]
     Active Substance: FERROUS GLYCINE SULFATE
     Dosage: 100.0MG UNKNOWN
  20. VALSARTAN. [Concomitant]
     Active Substance: VALSARTAN
     Indication: DIABETIC NEPHROPATHY
     Dates: end: 20170512
  21. RAMIPRIL. [Concomitant]
     Active Substance: RAMIPRIL
     Dosage: 10.0MG UNKNOWN
  22. VALSARTAN. [Concomitant]
     Active Substance: VALSARTAN
     Indication: HYPERTENSION
     Dates: end: 20170512

REACTIONS (2)
  - Nephrotic syndrome [Not Recovered/Not Resolved]
  - Cutaneous vasculitis [Not Recovered/Not Resolved]

NARRATIVE: CASE EVENT DATE: 20170501
